FAERS Safety Report 7042274-7 (Version None)
Quarter: 2010Q4

REPORT INFORMATION
  Report Type: 
  Country: None (occurrence: None)
  Receive Date: 20101013
  Receipt Date: 20091022
  Transmission Date: 20110411
  Serious: No
  Sender: FDA-Public Use
  Company Number: US-ASTRAZENECA-2009SE22074

PATIENT
  Age: 55 Year
  Sex: Female
  Weight: 105.2 kg

DRUGS (5)
  1. SYMBICORT [Suspect]
     Indication: ASTHMA
     Dosage: 320/9 UG BID
     Route: 055
  2. SYNTHROID [Concomitant]
  3. CRESTOR [Concomitant]
  4. PROVENTIL [Concomitant]
  5. XANAX [Concomitant]

REACTIONS (2)
  - DRY THROAT [None]
  - GLOSSITIS [None]
